FAERS Safety Report 10498152 (Version 1)
Quarter: 2014Q4

REPORT INFORMATION
  Report Type: Spontaneous
  Country: US (occurrence: None)
  Receive Date: 20141002
  Receipt Date: 20141002
  Transmission Date: 20150528
  Serious: Yes (Death, Other)
  Sender: FDA-Public Use
  Company Number: 2555618

PATIENT
  Sex: Male

DRUGS (1)
  1. KETOROLAC TROMETHAMINE. [Suspect]
     Active Substance: KETOROLAC TROMETHAMINE
     Indication: BACK PAIN
     Route: 030
     Dates: start: 201210

REACTIONS (7)
  - Necrotising fasciitis [None]
  - Multiple injuries [None]
  - Back pain [None]
  - Ischaemia [None]
  - Gangrene [None]
  - Amputation [None]
  - Septic shock [None]
